FAERS Safety Report 6676921-6 (Version None)
Quarter: 2010Q2

REPORT INFORMATION
  Report Type: 
  Country: None (occurrence: None)
  Receive Date: 20100412
  Receipt Date: 20100330
  Transmission Date: 20101027
  Serious: Yes (Other)
  Sender: FDA-Public Use
  Company Number: US-CELGENEUS-163-21880-10030783

PATIENT
  Sex: Male
  Weight: 83.354 kg

DRUGS (6)
  1. REVLIMID [Suspect]
     Indication: MULTIPLE MYELOMA
     Route: 048
     Dates: start: 20091015
  2. REVLIMID [Suspect]
     Route: 048
     Dates: start: 20081027, end: 20090101
  3. REVLIMID [Suspect]
     Route: 048
     Dates: start: 20090323
  4. REVLIMID [Suspect]
     Route: 048
     Dates: start: 20090522, end: 20090612
  5. DEXAMETHASONE [Concomitant]
     Indication: MULTIPLE MYELOMA
     Route: 065
     Dates: start: 20091015
  6. DEXAMETHASONE [Concomitant]
     Route: 065
     Dates: start: 20081027, end: 20090101

REACTIONS (3)
  - HAEMORRHAGE [None]
  - PLATELET COUNT DECREASED [None]
  - UPPER RESPIRATORY TRACT INFECTION [None]
